FAERS Safety Report 5457180-9 (Version None)
Quarter: 2007Q3

REPORT INFORMATION
  Report Type: 
  Country: None (occurrence: None)
  Receive Date: 20070918
  Receipt Date: 20070709
  Transmission Date: 20080115
  Serious: Yes (Other)
  Sender: FDA-Public Use
  Company Number: US-ASTRAZENECA-2007UW01552

PATIENT
  Age: 408 Month
  Sex: Male

DRUGS (4)
  1. SEROQUEL [Suspect]
     Indication: BIPOLAR DISORDER
     Route: 048
     Dates: start: 20030101, end: 20050401
  2. SEROQUEL [Suspect]
     Indication: DEPRESSION
     Route: 048
     Dates: start: 20030101, end: 20050401
  3. RISPERDAL [Suspect]
     Dates: start: 20040101
  4. ZYPREXA [Suspect]
     Dates: start: 19990101, end: 20040101

REACTIONS (1)
  - PANCREATITIS [None]
